FAERS Safety Report 8358453-2 (Version None)
Quarter: 2012Q2

REPORT INFORMATION
  Report Type: 
  Country: None (occurrence: None)
  Receive Date: 20120514
  Receipt Date: 20110901
  Transmission Date: 20120825
  Serious: No
  Sender: FDA-Public Use
  Company Number: US-TEVA-2011004587

PATIENT
  Sex: Female
  Weight: 95.34 kg

DRUGS (9)
  1. VERAPAMIL [Concomitant]
     Dates: start: 20010101
  2. CRESTOR [Concomitant]
  3. NUVIGIL [Suspect]
     Indication: SLEEP APNOEA SYNDROME
     Dosage: 50 MILLIGRAM;
     Route: 048
     Dates: start: 20110101
  4. LOPID [Concomitant]
  5. LASIX [Concomitant]
  6. INSULIN [Concomitant]
     Dates: start: 19930101
  7. NEURONTIN [Concomitant]
  8. CATAFLAM [Concomitant]
  9. SINEMET [Concomitant]

REACTIONS (1)
  - ANXIETY [None]
